FAERS Safety Report 21251266 (Version 5)
Quarter: 2022Q4

REPORT INFORMATION
  Report Type: Spontaneous
  Country: HU (occurrence: HU)
  Receive Date: 20220825
  Receipt Date: 20221123
  Transmission Date: 20230113
  Serious: Yes (Hospitalization)
  Sender: FDA-Public Use
  Company Number: HU-Accord-273569

PATIENT
  Age: 73 Year
  Sex: Male
  Weight: 90.9 kg

DRUGS (21)
  1. RITUXIMAB [Suspect]
     Active Substance: RITUXIMAB
     Indication: Diffuse large B-cell lymphoma
     Dosage: 1Q2W
     Route: 041
     Dates: start: 20220711, end: 20220711
  2. RITUXIMAB [Suspect]
     Active Substance: RITUXIMAB
     Dosage: 1Q2W
     Route: 041
     Dates: start: 20220808
  3. GEMCITABINE [Suspect]
     Active Substance: GEMCITABINE
     Indication: Diffuse large B-cell lymphoma
     Dosage: 1Q2W
     Route: 042
     Dates: start: 20220712, end: 20220712
  4. GEMCITABINE [Suspect]
     Active Substance: GEMCITABINE
     Dosage: 1Q2W
     Route: 042
     Dates: start: 20220809
  5. OXALIPLATIN [Suspect]
     Active Substance: OXALIPLATIN
     Indication: Diffuse large B-cell lymphoma
     Dosage: 1Q2W
     Route: 042
     Dates: start: 20220712, end: 20220712
  6. OXALIPLATIN [Suspect]
     Active Substance: OXALIPLATIN
     Dosage: 1Q2W
     Route: 042
     Dates: start: 20220809
  7. MEROPENEM [Concomitant]
     Active Substance: MEROPENEM
     Dates: start: 20220722, end: 20220728
  8. POTASSIUM CHLORIDE [Concomitant]
     Active Substance: POTASSIUM CHLORIDE
     Dates: start: 20220713, end: 20220728
  9. VANCOMYCIN [Concomitant]
     Active Substance: VANCOMYCIN
     Dates: start: 20220716, end: 20220728
  10. SODIUM BICARBONATE [Concomitant]
     Active Substance: SODIUM BICARBONATE
     Dosage: 8.4 PERCENT
     Dates: start: 20220711, end: 20220713
  11. FEBUXOSTAT [Concomitant]
     Active Substance: FEBUXOSTAT
     Dates: start: 20220711
  12. CHLOROPYRAMINE HYDROCHLORIDE [Concomitant]
     Active Substance: CHLOROPYRAMINE HYDROCHLORIDE
     Dates: start: 20220711, end: 20220711
  13. SOLU-MEDROL [Concomitant]
     Active Substance: METHYLPREDNISOLONE SODIUM SUCCINATE
     Dates: start: 20220711, end: 20220711
  14. MEDROL [Concomitant]
     Active Substance: METHYLPREDNISOLONE
     Dates: start: 20220622, end: 20220714
  15. ACETAMINOPHEN [Concomitant]
     Active Substance: ACETAMINOPHEN
     Dates: start: 20220711, end: 20220711
  16. LOXOPROFEN SODIUM [Concomitant]
     Active Substance: LOXOPROFEN SODIUM
     Dates: start: 20220711, end: 20220728
  17. PANTOPRAZOLE [Concomitant]
     Active Substance: PANTOPRAZOLE
     Dates: start: 20220622
  18. ONDANSETRON HYDROCHLORIDE [Concomitant]
     Active Substance: ONDANSETRON HYDROCHLORIDE
     Dates: start: 20220712, end: 20220712
  19. SODIUM CHLORIDE [Concomitant]
     Active Substance: SODIUM CHLORIDE
     Dates: start: 20220711, end: 20220728
  20. FUROSEMIDE [Concomitant]
     Active Substance: FUROSEMIDE
     Dates: start: 20220711, end: 20220728
  21. BISOPROLOL [Concomitant]
     Active Substance: BISOPROLOL
     Dates: start: 202202

REACTIONS (1)
  - Febrile neutropenia [Recovered/Resolved]

NARRATIVE: CASE EVENT DATE: 20220713
